FAERS Safety Report 9254034 (Version 1)
Quarter: 2013Q2

REPORT INFORMATION
  Report Type: Spontaneous
  Country: US (occurrence: None)
  Receive Date: 20130422
  Receipt Date: 20130422
  Transmission Date: 20140414
  Serious: Yes (Other)
  Sender: FDA-Public Use
  Company Number: None

PATIENT
  Age: 45 Year
  Sex: Female
  Weight: 69.4 kg

DRUGS (2)
  1. ZOLPIDEM TARTRATE [Suspect]
     Indication: INSOMNIA
     Dosage: DAILY.
  2. ZOLPIDEM TARTRATE [Suspect]
     Indication: BIPOLAR DISORDER
     Dosage: DAILY.

REACTIONS (2)
  - Product substitution issue [None]
  - Treatment failure [None]
